FAERS Safety Report 9961211 (Version 1)
Quarter: 2014Q1

REPORT INFORMATION
  Report Type: Spontaneous
  Country: US (occurrence: US)
  Receive Date: 20140305
  Receipt Date: 20140305
  Transmission Date: 20141002
  Serious: Yes (Hospitalization)
  Sender: FDA-Public Use
  Company Number: US-SA-2014SA026382

PATIENT
  Age: 70 Year
  Sex: Female

DRUGS (2)
  1. LANTUS SOLOSTAR [Suspect]
     Dosage: DOSE:25 UNIT(S)
     Route: 051
  2. SOLOSTAR [Concomitant]

REACTIONS (2)
  - Lung disorder [Unknown]
  - Injection site pain [Unknown]
